FAERS Safety Report 19548688 (Version 1)
Quarter: 2021Q3

REPORT INFORMATION
  Report Type: Spontaneous
  Country: US (occurrence: US)
  Receive Date: 20210714
  Receipt Date: 20210714
  Transmission Date: 20211014
  Serious: Yes (Hospitalization)
  Sender: FDA-Public Use
  Company Number: None

PATIENT
  Age: 84 Year
  Sex: Female
  Weight: 81.1 kg

DRUGS (1)
  1. REVLIMID [Suspect]
     Active Substance: LENALIDOMIDE
     Dosage: ?          OTHER ROUTE:28 DAYS?

REACTIONS (4)
  - Oropharyngeal pain [None]
  - Pneumonia [None]
  - Therapy interrupted [None]
  - Eye discharge [None]

NARRATIVE: CASE EVENT DATE: 20210703
